FAERS Safety Report 7690696-3 (Version None)
Quarter: 2011Q3

REPORT INFORMATION
  Report Type: 
  Country: None (occurrence: None)
  Receive Date: 20110818
  Receipt Date: 20110809
  Transmission Date: 20111222
  Serious: Yes (Hospitalization)
  Sender: FDA-Public Use
  Company Number: FR-SANOFI-AVENTIS-2011SA050776

PATIENT
  Age: 89 Year
  Sex: Female

DRUGS (8)
  1. ACUPAN [Suspect]
     Route: 048
     Dates: end: 20110719
  2. ESOMEPRAZOLE MAGNESIUM [Concomitant]
     Route: 048
  3. NITROGLYCERIN [Suspect]
     Route: 003
     Dates: end: 20110719
  4. LASIX [Suspect]
     Route: 048
     Dates: end: 20110719
  5. PREVISCAN [Suspect]
     Dates: end: 20110719
  6. EFFEXOR [Suspect]
     Route: 048
     Dates: start: 20110621, end: 20110719
  7. ACETAMINOPHEN [Concomitant]
  8. KETOCONAZOLE [Suspect]
     Route: 003
     Dates: end: 20110719

REACTIONS (2)
  - INTERNATIONAL NORMALISED RATIO INCREASED [None]
  - SUBCUTANEOUS HAEMATOMA [None]
